FAERS Safety Report 23249314 (Version 1)
Quarter: 2023Q4

REPORT INFORMATION
  Report Type: Report from Study
  Country: US (occurrence: US)
  Receive Date: 20231201
  Receipt Date: 20231201
  Transmission Date: 20240110
  Serious: Yes (Other)
  Sender: FDA-Public Use
  Company Number: US-AZURITY PHARMACEUTICALS, INC.-US-2023ARB004960

PATIENT
  Sex: Female

DRUGS (48)
  1. TOPIRAMATE [Suspect]
     Active Substance: TOPIRAMATE
     Indication: Seizure
     Dosage: UNK
  2. TOPIRAMATE [Suspect]
     Active Substance: TOPIRAMATE
     Indication: Myoclonic epilepsy
  3. TOPIRAMATE [Suspect]
     Active Substance: TOPIRAMATE
     Indication: Petit mal epilepsy
  4. TOPIRAMATE [Suspect]
     Active Substance: TOPIRAMATE
     Indication: Tonic convulsion
  5. TOPIRAMATE [Suspect]
     Active Substance: TOPIRAMATE
     Indication: Atonic seizures
  6. TOPIRAMATE [Suspect]
     Active Substance: TOPIRAMATE
     Indication: Febrile convulsion
  7. LEVETIRACETAM [Suspect]
     Active Substance: LEVETIRACETAM
     Indication: Seizure
     Dosage: UNK
  8. LEVETIRACETAM [Suspect]
     Active Substance: LEVETIRACETAM
     Indication: Myoclonic epilepsy
  9. LEVETIRACETAM [Suspect]
     Active Substance: LEVETIRACETAM
     Indication: Petit mal epilepsy
  10. LEVETIRACETAM [Suspect]
     Active Substance: LEVETIRACETAM
     Indication: Tonic convulsion
  11. LEVETIRACETAM [Suspect]
     Active Substance: LEVETIRACETAM
     Indication: Atonic seizures
  12. LEVETIRACETAM [Suspect]
     Active Substance: LEVETIRACETAM
     Indication: Febrile convulsion
  13. OXCARBAZEPINE [Suspect]
     Active Substance: OXCARBAZEPINE
     Indication: Seizure
     Dosage: UNK
  14. OXCARBAZEPINE [Suspect]
     Active Substance: OXCARBAZEPINE
     Indication: Myoclonic epilepsy
  15. OXCARBAZEPINE [Suspect]
     Active Substance: OXCARBAZEPINE
     Indication: Petit mal epilepsy
  16. OXCARBAZEPINE [Suspect]
     Active Substance: OXCARBAZEPINE
     Indication: Tonic convulsion
  17. OXCARBAZEPINE [Suspect]
     Active Substance: OXCARBAZEPINE
     Indication: Atonic seizures
  18. OXCARBAZEPINE [Suspect]
     Active Substance: OXCARBAZEPINE
     Indication: Febrile convulsion
  19. VALPROIC ACID [Suspect]
     Active Substance: VALPROIC ACID
     Indication: Seizure
     Dosage: UNK
  20. VALPROIC ACID [Suspect]
     Active Substance: VALPROIC ACID
     Indication: Myoclonic epilepsy
  21. VALPROIC ACID [Suspect]
     Active Substance: VALPROIC ACID
     Indication: Petit mal epilepsy
  22. VALPROIC ACID [Suspect]
     Active Substance: VALPROIC ACID
     Indication: Tonic convulsion
  23. VALPROIC ACID [Suspect]
     Active Substance: VALPROIC ACID
     Indication: Atonic seizures
  24. VALPROIC ACID [Suspect]
     Active Substance: VALPROIC ACID
     Indication: Febrile convulsion
  25. CLOBAZAM [Concomitant]
     Active Substance: CLOBAZAM
     Indication: Seizure
     Dosage: UNK
  26. CLOBAZAM [Concomitant]
     Active Substance: CLOBAZAM
     Indication: Myoclonic epilepsy
  27. CLOBAZAM [Concomitant]
     Active Substance: CLOBAZAM
     Indication: Petit mal epilepsy
  28. CLOBAZAM [Concomitant]
     Active Substance: CLOBAZAM
     Indication: Tonic convulsion
  29. CLOBAZAM [Concomitant]
     Active Substance: CLOBAZAM
     Indication: Atonic seizures
  30. CLOBAZAM [Concomitant]
     Active Substance: CLOBAZAM
     Indication: Febrile convulsion
  31. ETHOSUXIMIDE [Concomitant]
     Active Substance: ETHOSUXIMIDE
     Indication: Seizure
     Dosage: UNK
  32. ETHOSUXIMIDE [Concomitant]
     Active Substance: ETHOSUXIMIDE
     Indication: Myoclonic epilepsy
  33. ETHOSUXIMIDE [Concomitant]
     Active Substance: ETHOSUXIMIDE
     Indication: Petit mal epilepsy
  34. ETHOSUXIMIDE [Concomitant]
     Active Substance: ETHOSUXIMIDE
     Indication: Tonic convulsion
  35. ETHOSUXIMIDE [Concomitant]
     Active Substance: ETHOSUXIMIDE
     Indication: Atonic seizures
  36. ETHOSUXIMIDE [Concomitant]
     Active Substance: ETHOSUXIMIDE
     Indication: Febrile convulsion
  37. PERAMPANEL [Concomitant]
     Active Substance: PERAMPANEL
     Indication: Seizure
     Dosage: UNK
  38. PERAMPANEL [Concomitant]
     Active Substance: PERAMPANEL
     Indication: Myoclonic epilepsy
  39. PERAMPANEL [Concomitant]
     Active Substance: PERAMPANEL
     Indication: Petit mal epilepsy
  40. PERAMPANEL [Concomitant]
     Active Substance: PERAMPANEL
     Indication: Tonic convulsion
  41. PERAMPANEL [Concomitant]
     Active Substance: PERAMPANEL
     Indication: Atonic seizures
  42. PERAMPANEL [Concomitant]
     Active Substance: PERAMPANEL
     Indication: Febrile convulsion
  43. RUFINAMIDE [Concomitant]
     Active Substance: RUFINAMIDE
     Indication: Seizure
     Dosage: UNK
  44. RUFINAMIDE [Concomitant]
     Active Substance: RUFINAMIDE
     Indication: Myoclonic epilepsy
  45. RUFINAMIDE [Concomitant]
     Active Substance: RUFINAMIDE
     Indication: Petit mal epilepsy
  46. RUFINAMIDE [Concomitant]
     Active Substance: RUFINAMIDE
     Indication: Tonic convulsion
  47. RUFINAMIDE [Concomitant]
     Active Substance: RUFINAMIDE
     Indication: Atonic seizures
  48. RUFINAMIDE [Concomitant]
     Active Substance: RUFINAMIDE
     Indication: Febrile convulsion

REACTIONS (1)
  - Toxicity to various agents [Unknown]
